APPROVED DRUG PRODUCT: QUESTRAN
Active Ingredient: CHOLESTYRAMINE
Strength: EQ 1GM RESIN
Dosage Form/Route: TABLET;ORAL
Application: A073403 | Product #001
Applicant: APOTHECON INC DIV BRISTOL MYERS SQUIBB
Approved: Apr 28, 1994 | RLD: No | RS: No | Type: DISCN